FAERS Safety Report 12213523 (Version 1)
Quarter: 2016Q1

REPORT INFORMATION
  Report Type: Spontaneous
  Country: FR (occurrence: FR)
  Receive Date: 20160328
  Receipt Date: 20160328
  Transmission Date: 20160526
  Serious: Yes (Death, Hospitalization, Other)
  Sender: FDA-Public Use
  Company Number: FR-ELI_LILLY_AND_COMPANY-FR201603007186

PATIENT
  Age: 54 Year
  Sex: Male

DRUGS (18)
  1. AVASTIN [Suspect]
     Active Substance: BEVACIZUMAB
     Indication: LUNG ADENOCARCINOMA
     Dosage: 575 MG, UNK
     Route: 042
     Dates: start: 20150921
  2. AVASTIN [Suspect]
     Active Substance: BEVACIZUMAB
     Dosage: 550 MG, UNK
     Route: 042
     Dates: start: 20151019
  3. INEXIUM                            /01479302/ [Concomitant]
     Active Substance: ESOMEPRAZOLE MAGNESIUM
     Dosage: 40 MG, EACH EVENING
  4. CISPLATIN. [Suspect]
     Active Substance: CISPLATIN
     Dosage: UNK
     Route: 042
     Dates: start: 20151110
  5. DIFFU K [Concomitant]
     Active Substance: POTASSIUM CHLORIDE
     Dosage: 1200 MG, EACH EVENING
     Route: 048
  6. ALIMTA [Suspect]
     Active Substance: PEMETREXED DISODIUM
     Dosage: UNK
     Route: 042
     Dates: start: 20151019
  7. ALIMTA [Suspect]
     Active Substance: PEMETREXED DISODIUM
     Dosage: 950 MG, UNK
     Route: 042
     Dates: start: 20151130, end: 20151130
  8. ALIMTA [Suspect]
     Active Substance: PEMETREXED DISODIUM
     Dosage: 950 MG, UNK
     Route: 042
     Dates: start: 20151221, end: 20151221
  9. CISPLATIN. [Suspect]
     Active Substance: CISPLATIN
     Indication: LUNG ADENOCARCINOMA
     Dosage: UNK
     Route: 042
     Dates: start: 20150921
  10. DIFFU K [Concomitant]
     Active Substance: POTASSIUM CHLORIDE
     Dosage: 1200 MG, EACH MORNING
     Route: 048
  11. ALIMTA [Suspect]
     Active Substance: PEMETREXED DISODIUM
     Indication: LUNG ADENOCARCINOMA
     Dosage: UNK
     Route: 042
     Dates: start: 20150921
  12. CISPLATIN. [Suspect]
     Active Substance: CISPLATIN
     Dosage: 140 MG, UNK
     Route: 042
     Dates: start: 20151130, end: 20151130
  13. ALIMTA [Suspect]
     Active Substance: PEMETREXED DISODIUM
     Dosage: UNK
     Route: 042
     Dates: start: 20151110
  14. CISPLATIN. [Suspect]
     Active Substance: CISPLATIN
     Dosage: UNK
     Route: 042
     Dates: start: 20151019
  15. CISPLATIN. [Suspect]
     Active Substance: CISPLATIN
     Dosage: 140 MG, UNK
     Route: 042
     Dates: start: 20151221, end: 20151221
  16. AVASTIN [Suspect]
     Active Substance: BEVACIZUMAB
     Dosage: 590 MG, UNK
     Route: 042
     Dates: start: 20151110
  17. AVASTIN [Suspect]
     Active Substance: BEVACIZUMAB
     Dosage: 590 MG, UNK
     Route: 042
     Dates: start: 20151130, end: 20151130
  18. DAFALGAN [Concomitant]
     Active Substance: ACETAMINOPHEN
     Dosage: 1 G, PRN

REACTIONS (5)
  - Systemic inflammatory response syndrome [Unknown]
  - Haemoptysis [Fatal]
  - Off label use [Unknown]
  - Bronchial fistula [Unknown]
  - Haemoptysis [Recovered/Resolved]

NARRATIVE: CASE EVENT DATE: 20151202
